FAERS Safety Report 18627239 (Version 1)
Quarter: 2020Q4

REPORT INFORMATION
  Report Type: Spontaneous
  Country: US (occurrence: US)
  Receive Date: 20201217
  Receipt Date: 20201217
  Transmission Date: 20210114
  Serious: Yes (Death, Hospitalization, Other)
  Sender: FDA-Public Use
  Company Number: US-AMGEN-USASP2020200006

PATIENT
  Age: 70 Year
  Sex: Female

DRUGS (5)
  1. XGEVA [Suspect]
     Active Substance: DENOSUMAB
     Indication: PROPHYLAXIS
     Dosage: UNK
     Route: 065
  2. LETROZOLE. [Concomitant]
     Active Substance: LETROZOLE
     Indication: BREAST CANCER METASTATIC
     Dosage: UNK
     Dates: start: 201105, end: 201306
  3. VINORELBINE [Concomitant]
     Active Substance: VINORELBINE TARTRATE
     Indication: BREAST CANCER METASTATIC
     Dosage: UNK
     Dates: start: 201012, end: 201105
  4. VINORELBINE [Concomitant]
     Active Substance: VINORELBINE TARTRATE
     Dosage: 20 MILLIGRAM/SQ. METER, Q2WK
     Route: 065
     Dates: start: 201609, end: 201611
  5. LETROZOLE. [Concomitant]
     Active Substance: LETROZOLE
     Indication: DISEASE PROGRESSION
     Dosage: UNK
     Dates: start: 201601, end: 201604

REACTIONS (5)
  - B-cell lymphoma [Recovered/Resolved]
  - Breast cancer metastatic [Not Recovered/Not Resolved]
  - Diarrhoea [Unknown]
  - Febrile neutropenia [Unknown]
  - Sepsis [Fatal]

NARRATIVE: CASE EVENT DATE: 2015
